FAERS Safety Report 8020477-2 (Version None)
Quarter: 2012Q1

REPORT INFORMATION
  Report Type: 
  Country: None (occurrence: None)
  Receive Date: 20120103
  Receipt Date: 20111229
  Transmission Date: 20120608
  Serious: Yes (Other)
  Sender: FDA-Public Use
  Company Number: GB-PFIZER INC-2012000135

PATIENT
  Age: 44 Year
  Sex: Male
  Weight: 130 kg

DRUGS (6)
  1. SALBUTAMOL [Concomitant]
     Dosage: UNK
     Dates: start: 20111118, end: 20111216
  2. VARENICLINE TARTRATE [Suspect]
     Dosage: UNK
     Dates: start: 20111219
  3. AMOXICILLIN [Concomitant]
     Dosage: UNK
     Dates: start: 20111203, end: 20111210
  4. DOXYCYCLINE [Concomitant]
     Dosage: UNK
     Dates: start: 20110927, end: 20111004
  5. PREDNISOLONE [Concomitant]
     Dosage: UNK
     Dates: start: 20111203, end: 20111204
  6. FLUTICASONE PROPIONATE/SALMETEROL [Concomitant]
     Dosage: UNK
     Dates: start: 20111118, end: 20111216

REACTIONS (2)
  - NAUSEA [None]
  - ANAL HAEMORRHAGE [None]
